FAERS Safety Report 6492010-8 (Version None)
Quarter: 2009Q4

REPORT INFORMATION
  Report Type: 
  Country: None (occurrence: None)
  Receive Date: 20091208
  Receipt Date: 20091126
  Transmission Date: 20100525
  Serious: Yes (Other)
  Sender: FDA-Public Use
  Company Number: 2009AP004832

PATIENT
  Age: 39 Year
  Sex: Male

DRUGS (2)
  1. TERBINAFINE HCL [Suspect]
     Indication: NAIL DISORDER
     Dosage: PO
     Route: 048
  2. FLUCOXACILLIN SODIUM (FLUCLOXACILLIN SODIUM) [Suspect]
     Dosage: PO
     Route: 048

REACTIONS (3)
  - BLISTER [None]
  - HYPERSENSITIVITY [None]
  - RASH [None]
